FAERS Safety Report 13622098 (Version 1)
Quarter: 2017Q2

REPORT INFORMATION
  Report Type: Spontaneous
  Country: US (occurrence: US)
  Receive Date: 20170607
  Receipt Date: 20170607
  Transmission Date: 20170830
  Serious: No
  Sender: FDA-Public Use
  Company Number: US-ROCHE-1924823

PATIENT
  Age: 47 Year
  Sex: Male
  Weight: 89.89 kg

DRUGS (2)
  1. XELODA [Suspect]
     Active Substance: CAPECITABINE
     Indication: RECTAL CANCER
     Dosage: MORNING DOSE
     Route: 048
     Dates: start: 20170410, end: 20170417
  2. XELODA [Suspect]
     Active Substance: CAPECITABINE
     Dosage: IN EVENING
     Route: 048
     Dates: start: 20170410, end: 20170417

REACTIONS (1)
  - Rash [Recovering/Resolving]

NARRATIVE: CASE EVENT DATE: 20170413
